FAERS Safety Report 11972623 (Version 4)
Quarter: 2016Q2

REPORT INFORMATION
  Report Type: Report from Study
  Country: US (occurrence: US)
  Receive Date: 20160128
  Receipt Date: 20160623
  Transmission Date: 20160815
  Serious: Yes (Hospitalization, Disabling, Other)
  Sender: FDA-Public Use
  Company Number: US-ACTELION-A-US2016-130478

PATIENT
  Age: 65 Year
  Sex: Female
  Weight: 50.8 kg

DRUGS (10)
  1. VITAMIN D3 [Concomitant]
     Active Substance: CHOLECALCIFEROL
  2. OXYGEN. [Concomitant]
     Active Substance: OXYGEN
     Dosage: 2 L/MIN, 24/7
  3. ADCIRCA [Suspect]
     Active Substance: TADALAFIL
     Indication: PRODUCT USED FOR UNKNOWN INDICATION
     Dosage: 20 MG, BID
     Route: 065
     Dates: start: 201503, end: 201603
  4. SYNTHROID [Concomitant]
     Active Substance: LEVOTHYROXINE SODIUM
  5. LASIX [Concomitant]
     Active Substance: FUROSEMIDE
     Dosage: 80 MG, BID
  6. COREG [Concomitant]
     Active Substance: CARVEDILOL
     Dosage: 6.25 MG, BID
  7. OPSUMIT [Suspect]
     Active Substance: MACITENTAN
     Indication: PULMONARY HYPERTENSION
     Dosage: 10 MG, QD
     Route: 048
     Dates: start: 20150127, end: 201603
  8. REVATIO [Concomitant]
     Active Substance: SILDENAFIL CITRATE
  9. TYVASO [Suspect]
     Active Substance: TREPROSTINIL
     Indication: PULMONARY HYPERTENSION
     Dosage: 18-54MCG, QID
     Route: 055
     Dates: start: 20160310
  10. ALDACTONE [Concomitant]
     Active Substance: SPIRONOLACTONE
     Dosage: 25 MG, QD

REACTIONS (10)
  - Diarrhoea [Unknown]
  - Dry throat [Unknown]
  - Anaemia [Unknown]
  - Walking distance test abnormal [Unknown]
  - Chronic kidney disease [Recovering/Resolving]
  - Headache [Recovering/Resolving]
  - Transfusion [Recovering/Resolving]
  - Dizziness [Unknown]
  - Haemoglobin decreased [Unknown]
  - Incision site haemorrhage [Unknown]
